FAERS Safety Report 9343752 (Version 1)
Quarter: 2013Q2

REPORT INFORMATION
  Report Type: Spontaneous
  Country: US (occurrence: US)
  Receive Date: 20130612
  Receipt Date: 20130612
  Transmission Date: 20140414
  Serious: No
  Sender: FDA-Public Use
  Company Number: US-BAYER-2013-069421

PATIENT
  Age: 83 Year
  Sex: Male
  Weight: 99.77 kg

DRUGS (5)
  1. ALEVE CAPLET [Suspect]
     Indication: BACK PAIN
     Dosage: 1 DF, QD
     Route: 048
     Dates: start: 201211, end: 201305
  2. BAYER EXTRA STRENGTH BACK + BODY PAIN [Suspect]
     Indication: BACK PAIN
     Dosage: 1 DF, QD
     Route: 048
     Dates: start: 201305, end: 20130531
  3. ONE A DAY MEN^S 50+ HEALTHY ADVANTAGE [Concomitant]
  4. FISH OIL [Concomitant]
  5. DIOVAN [Concomitant]

REACTIONS (3)
  - Renal disorder [Not Recovered/Not Resolved]
  - Hypotension [Not Recovered/Not Resolved]
  - Incorrect drug administration duration [None]
